FAERS Safety Report 7917333 (Version 4)
Quarter: 2013Q3

REPORT INFORMATION
  Report Type: Spontaneous
  Country: US (occurrence: US)
  Receive Date: 20110427
  Receipt Date: 20130820
  Transmission Date: 20140515
  Serious: Yes (Hospitalization, Disabling, Other)
  Sender: FDA-Public Use
  Company Number: US-ASTRAZENECA-2010SE10892

PATIENT
  Age: 57 Year
  Sex: Female
  Weight: 113.4 kg

DRUGS (29)
  1. SEROQUEL [Suspect]
     Indication: BIPOLAR I DISORDER
     Dosage: BID
     Route: 048
     Dates: start: 2003
  2. SEROQUEL [Suspect]
     Indication: BIPOLAR I DISORDER
     Route: 048
  3. SEROQUEL [Suspect]
     Indication: BIPOLAR I DISORDER
     Route: 048
  4. SEROQUEL [Suspect]
     Indication: BIPOLAR I DISORDER
     Dosage: 300 MG, 2 HS
     Route: 048
  5. SEROQUEL [Suspect]
     Indication: BIPOLAR I DISORDER
     Dosage: 650-700 MG AT NIGHT
     Route: 048
  6. TOPROL XL [Suspect]
     Route: 048
  7. CRESTOR [Suspect]
     Indication: CARDIOVASCULAR DISORDER
     Route: 048
  8. CRESTOR [Suspect]
     Indication: HYPERCHOLESTEROLAEMIA
     Route: 048
  9. LITHIUM [Suspect]
     Route: 065
  10. PROGRAF [Concomitant]
     Dosage: 3 MG IN AM AND 2 MG AT BEDTIME
  11. MYFORTIC [Concomitant]
     Dosage: 720 MG IN AM AND 360 MG AT BEDTIME
  12. CLARITIN [Concomitant]
  13. PROTONIX [Concomitant]
  14. ASA [Concomitant]
  15. HCTZ [Concomitant]
  16. SYNTHROID [Concomitant]
  17. MAGNESIUM OXIDE [Concomitant]
  18. COLACE [Concomitant]
  19. VITAMIN D [Concomitant]
  20. FRAGMIN [Concomitant]
  21. RISPERDAL [Concomitant]
  22. NEURONTIN [Concomitant]
  23. DEPAKOTE DR [Concomitant]
  24. CLONAZEPAM [Concomitant]
  25. ROXICET [Concomitant]
     Dosage: 5 MG/325 MG AS NEEDED
  26. TYLENOL [Concomitant]
     Dosage: AS NEEDED
  27. OMEGA FISH OIL [Concomitant]
  28. MULTIVITAMIN [Concomitant]
  29. DEPAKOTE [Concomitant]

REACTIONS (18)
  - Cerebrovascular accident [Unknown]
  - Myocardial infarction [Unknown]
  - Hypercoagulation [Unknown]
  - Cardiac tamponade [Unknown]
  - Renal failure chronic [Unknown]
  - Osteoarthritis [Unknown]
  - Pain [Unknown]
  - Mania [Recovered/Resolved]
  - Psychotic disorder [Recovered/Resolved]
  - Delusion [Recovering/Resolving]
  - Suicidal ideation [Recovered/Resolved]
  - Pyrexia [Unknown]
  - Laryngitis [Unknown]
  - Hypothyroidism [Unknown]
  - Bipolar I disorder [Recovered/Resolved]
  - Asthma [Unknown]
  - Somnolence [Unknown]
  - Drug dose omission [Unknown]
